FAERS Safety Report 11811401 (Version 1)
Quarter: 2015Q4

REPORT INFORMATION
  Report Type: Spontaneous
  Country: US (occurrence: US)
  Receive Date: 20151208
  Receipt Date: 20151208
  Transmission Date: 20160305
  Serious: No
  Sender: FDA-Public Use
  Company Number: US-PFIZER INC-2015406985

PATIENT
  Age: 66 Year
  Sex: Female
  Weight: 83 kg

DRUGS (3)
  1. CELEBREX [Suspect]
     Active Substance: CELECOXIB
     Indication: PERIPHERAL SWELLING
  2. CELEBREX [Suspect]
     Active Substance: CELECOXIB
     Indication: PAIN IN EXTREMITY
     Dosage: 100 MG, 2X/DAY
     Dates: start: 20151101, end: 20151114
  3. CELEBREX [Suspect]
     Active Substance: CELECOXIB
     Indication: JOINT SWELLING

REACTIONS (1)
  - Pain in extremity [Not Recovered/Not Resolved]

NARRATIVE: CASE EVENT DATE: 20151112
